FAERS Safety Report 17790334 (Version 1)
Quarter: 2020Q2

REPORT INFORMATION
  Report Type: Spontaneous
  Country: MY (occurrence: MY)
  Receive Date: 20200514
  Receipt Date: 20200514
  Transmission Date: 20200714
  Serious: Yes (Other)
  Sender: FDA-Public Use
  Company Number: MY-CANTON LABORATORIES, LLC-2083798

PATIENT
  Age: 23 Year
  Sex: Female

DRUGS (1)
  1. NAPROSYN [Suspect]
     Active Substance: NAPROXEN
     Indication: TOOTHACHE
     Route: 048

REACTIONS (2)
  - Dyspnoea [Recovering/Resolving]
  - Periorbital swelling [Recovering/Resolving]
